FAERS Safety Report 7629358-7 (Version None)
Quarter: 2011Q3

REPORT INFORMATION
  Report Type: 
  Country: None (occurrence: None)
  Receive Date: 20110722
  Receipt Date: 20110715
  Transmission Date: 20111222
  Serious: Yes (Life-Threatening, Hospitalization)
  Sender: FDA-Public Use
  Company Number: US-JNJFOC-20110706971

PATIENT
  Age: 33 Year
  Sex: Female

DRUGS (5)
  1. ULTRAM [Suspect]
     Indication: INTENTIONAL OVERDOSE
     Dates: start: 20110401
  2. WELLBUTRIN SR [Concomitant]
  3. AMITRIPTYLINE HCL [Concomitant]
  4. GLIPIZIDE [Concomitant]
  5. CYCLOBENZAPRINE [Suspect]
     Indication: INTENTIONAL OVERDOSE
     Route: 065
     Dates: start: 20110401

REACTIONS (5)
  - HYPOGLYCAEMIA [None]
  - HYPERCHLORAEMIA [None]
  - HYPOKALAEMIA [None]
  - MULTIPLE DRUG OVERDOSE INTENTIONAL [None]
  - UNRESPONSIVE TO STIMULI [None]
